FAERS Safety Report 5219297-3 (Version None)
Quarter: 2007Q1

REPORT INFORMATION
  Report Type: 
  Country: None (occurrence: None)
  Receive Date: 20070123
  Receipt Date: 20070111
  Transmission Date: 20070707
  Serious: Yes (Hospitalization, Other)
  Sender: FDA-Public Use
  Company Number: 151829ISR

PATIENT
  Age: 84 Year
  Sex: Male

DRUGS (3)
  1. TRIMETHOPRIM [Suspect]
     Indication: URINARY TRACT INFECTION
     Dosage: 400 MG (200 MG, 2 IN 1 D)
     Route: 048
     Dates: start: 20061222
  2. WARFARIN SODIUM [Suspect]
     Indication: ATRIAL FIBRILLATION
     Dosage: 1 DF AS NECESSARY
     Route: 048
  3. TRIMETHOPRIM [Suspect]
     Dosage: 400 MG (200 MG, 2 IN 1 D)
     Route: 048
     Dates: start: 20061222, end: 20061228

REACTIONS (4)
  - DRUG INTERACTION INHIBITION [None]
  - HAEMATEMESIS [None]
  - HAEMOGLOBIN DECREASED [None]
  - INTERNATIONAL NORMALISED RATIO INCREASED [None]
